FAERS Safety Report 12603681 (Version 1)
Quarter: 2016Q3

REPORT INFORMATION
  Report Type: Spontaneous
  Country: DE (occurrence: DE)
  Receive Date: 20160728
  Receipt Date: 20160728
  Transmission Date: 20161109
  Serious: Yes (Hospitalization, Congenital Anomaly, Other)
  Sender: FDA-Public Use
  Company Number: DE-PFIZER INC-2016355660

PATIENT
  Sex: Female
  Weight: 1.23 kg

DRUGS (8)
  1. SERTRALINE HCL [Suspect]
     Active Substance: SERTRALINE HYDROCHLORIDE
     Indication: ANXIETY DISORDER
     Dosage: 75 MG, 1X/DAY (0 - 31.1 GESTATIONAL WEEK)
     Route: 064
     Dates: start: 20150223, end: 20150929
  2. OMEPRAZOL [Concomitant]
     Active Substance: OMEPRAZOLE
     Indication: PROPHYLAXIS AGAINST GASTROINTESTINAL ULCER
     Dosage: 20 MG, DAILY
     Route: 064
  3. MCP [Concomitant]
     Active Substance: METOCLOPRAMIDE HYDROCHLORIDE
     Indication: NAUSEA
     Dosage: UNK (SECOND TRIMESTER, 13.4 - 13.4 GESTATIONAL WEEK)
     Route: 064
     Dates: start: 20150529, end: 20150529
  4. TAVOR (LORAZEPAM) [Concomitant]
     Active Substance: LORAZEPAM
     Dosage: 1 MG, SINGLE (UNKNOWN TRIMESTER)
     Route: 064
  5. PANTOPRAZOLE [Concomitant]
     Active Substance: PANTOPRAZOLE SODIUM
     Indication: GASTRITIS
     Dosage: UNK (UNKNOWN TRIMESTER)
     Route: 064
  6. GLUCOSE 5% INFUSION [Concomitant]
     Indication: NAUSEA
     Dosage: UNK (SECOND TRIMESTER, 13.4. - 13.4. GESTATIONAL WEEK)
     Route: 064
     Dates: start: 20150529, end: 20150529
  7. MIRTAZAPINE. [Concomitant]
     Active Substance: MIRTAZAPINE
     Dosage: UNK (IF REQUIRED, IN TOTAL ONLY FOR 3 DAYS, SECOND TRIMESTER, 13.4 - GESTATIONAL WEEK)
     Route: 064
  8. GYNVITAL GRAVIDA [Concomitant]
     Active Substance: HERBALS
     Indication: PROPHYLAXIS OF NEURAL TUBE DEFECT
     Dosage: 0.4 MG, 1X/DAY (FIRST TRIMESTER 0 - 10 GESTATIONAL WEEK)
     Route: 064

REACTIONS (8)
  - Premature baby [Recovered/Resolved]
  - Congenital skin dimples [Not Recovered/Not Resolved]
  - Tethered cord syndrome [Not Recovered/Not Resolved]
  - Neonatal respiratory distress syndrome [Recovered/Resolved]
  - Granulocytopenia neonatal [Not Recovered/Not Resolved]
  - Systemic inflammatory response syndrome [Unknown]
  - Low birth weight baby [Unknown]
  - Maternal exposure during pregnancy [Unknown]

NARRATIVE: CASE EVENT DATE: 20150929
